FAERS Safety Report 25079837 (Version 2)
Quarter: 2025Q1

REPORT INFORMATION
  Report Type: Spontaneous
  Country: US (occurrence: US)
  Receive Date: 20250314
  Receipt Date: 20250320
  Transmission Date: 20250408
  Serious: Yes (Hospitalization, Other)
  Sender: BRAEBURN PHARMACEUTICALS
  Company Number: US-BRAEBURN PHARMACEUTICALS-US-BRA-25-000192

PATIENT
  Sex: Male

DRUGS (4)
  1. BRIXADI [Suspect]
     Active Substance: BUPRENORPHINE
     Indication: Product used for unknown indication
     Route: 065
  2. BRIXADI [Suspect]
     Active Substance: BUPRENORPHINE
     Route: 065
     Dates: start: 202412, end: 202412
  3. BRIXADI [Suspect]
     Active Substance: BUPRENORPHINE
     Route: 065
     Dates: start: 202501, end: 202501
  4. BRIXADI [Suspect]
     Active Substance: BUPRENORPHINE
     Route: 065
     Dates: start: 202502, end: 202502

REACTIONS (6)
  - Cerebrovascular accident [Unknown]
  - Small cell lung cancer [Unknown]
  - Administration site wound [Not Recovered/Not Resolved]
  - Drug dependence [Unknown]
  - Vomiting [Unknown]
  - Nausea [Unknown]

NARRATIVE: CASE EVENT DATE: 20241101
